FAERS Safety Report 7361970-5 (Version None)
Quarter: 2011Q1

REPORT INFORMATION
  Report Type: 
  Country: None (occurrence: None)
  Receive Date: 20110318
  Receipt Date: 20110310
  Transmission Date: 20110831
  Serious: Yes (Other)
  Sender: FDA-Public Use
  Company Number: US-MYLANLABS-2011S1001231

PATIENT
  Age: 20 Year
  Sex: Male
  Weight: 71.44 kg

DRUGS (8)
  1. DIVALPROEX SODIUM EXTENDED RELEASE [Suspect]
     Indication: CONVULSION
     Route: 048
     Dates: start: 20100301, end: 20101210
  2. DEPAKOTE [Suspect]
     Indication: CONVULSION
     Route: 048
     Dates: end: 20100801
  3. DEPAKOTE [Suspect]
     Indication: EPILEPSY
     Route: 048
     Dates: end: 20100801
  4. DIVALPROEX SODIUM EXTENDED RELEASE [Suspect]
     Indication: EPILEPSY
     Route: 048
     Dates: start: 20100301, end: 20101210
  5. DEPAKOTE [Suspect]
     Route: 048
     Dates: start: 20101211
  6. NASONEX [Concomitant]
     Indication: SINUSITIS
  7. DEPAKOTE [Suspect]
     Route: 048
     Dates: start: 20101211
  8. PROZAC [Concomitant]
     Dosage: ONE DOSE
     Route: 048
     Dates: start: 20101028, end: 20101029

REACTIONS (4)
  - ANTICONVULSANT DRUG LEVEL DECREASED [None]
  - TOOTH INJURY [None]
  - GRAND MAL CONVULSION [None]
  - DRUG INEFFECTIVE [None]
